FAERS Safety Report 12194630 (Version 1)
Quarter: 2016Q1

REPORT INFORMATION
  Report Type: Spontaneous
  Country: US (occurrence: US)
  Receive Date: 20160321
  Receipt Date: 20160321
  Transmission Date: 20160526
  Serious: No
  Sender: FDA-Public Use
  Company Number: US-PFIZER INC-2016163166

PATIENT
  Sex: Female

DRUGS (4)
  1. LYRICA [Suspect]
     Active Substance: PREGABALIN
     Indication: PARALYSIS
  2. LEVOTHYROXINE SODIUM. [Suspect]
     Active Substance: LEVOTHYROXINE SODIUM
     Indication: AUTOIMMUNE THYROIDITIS
     Dosage: 0.112MG ONE TABLET IN THE MORNING
  3. LYRICA [Suspect]
     Active Substance: PREGABALIN
     Indication: FIBROMYALGIA
     Dosage: 200 MG, 3X/DAY
     Dates: start: 2008
  4. LYRICA [Suspect]
     Active Substance: PREGABALIN
     Indication: COMPLEX REGIONAL PAIN SYNDROME

REACTIONS (2)
  - Thyroid function test abnormal [Unknown]
  - Fibromyalgia [Unknown]
